FAERS Safety Report 20083627 (Version 2)
Quarter: 2021Q4

REPORT INFORMATION
  Report Type: Spontaneous
  Country: US (occurrence: None)
  Receive Date: 20211118
  Receipt Date: 20211214
  Transmission Date: 20220303
  Serious: No
  Sender: FDA-Public Use
  Company Number: 2021A796773

PATIENT
  Age: 655 Month
  Sex: Female

DRUGS (1)
  1. FASENRA [Suspect]
     Active Substance: BENRALIZUMAB
     Indication: Asthma
     Dosage: 30MG/ML EVERY EIGHT WEEKS
     Route: 058
     Dates: start: 202011

REACTIONS (3)
  - Injection site pain [Unknown]
  - Incorrect dose administered by product [Unknown]
  - Device leakage [Unknown]

NARRATIVE: CASE EVENT DATE: 20201101
